FAERS Safety Report 14499042 (Version 1)
Quarter: 2018Q1

REPORT INFORMATION
  Report Type: Spontaneous
  Country: US (occurrence: US)
  Receive Date: 20180207
  Receipt Date: 20180207
  Transmission Date: 20180509
  Serious: Yes (Hospitalization)
  Sender: FDA-Public Use
  Company Number: US-LANNETT COMPANY, INC.-US-2018LAN000051

PATIENT
  Age: 55 Year
  Sex: Female

DRUGS (3)
  1. HYDROMORPHONE HYDROCHLORIDE (8MG) [Suspect]
     Active Substance: HYDROMORPHONE HYDROCHLORIDE
     Indication: PAIN
     Dosage: 1 MG, UNK
     Route: 037
  2. CLONIDINE. [Suspect]
     Active Substance: CLONIDINE
     Indication: PAIN
     Dosage: 50 MCG/ML
     Route: 037
  3. BUPIVICAINE [Suspect]
     Active Substance: BUPIVACAINE
     Indication: PAIN
     Dosage: 40 MG/ML
     Route: 037

REACTIONS (2)
  - Hypertensive encephalopathy [Recovering/Resolving]
  - Drug interaction [Unknown]
